FAERS Safety Report 20481903 (Version 2)
Quarter: 2022Q1

REPORT INFORMATION
  Report Type: Report from Study
  Country: US (occurrence: US)
  Receive Date: 20220216
  Receipt Date: 20220314
  Transmission Date: 20220423
  Serious: Yes (Death)
  Sender: FDA-Public Use
  Company Number: US-OTSUKA-2022_005852

PATIENT
  Age: 93 Year
  Sex: Female

DRUGS (1)
  1. DEXTROMETHORPHAN HYDROBROMIDE\QUINIDINE SULFATE [Suspect]
     Active Substance: DEXTROMETHORPHAN HYDROBROMIDE\QUINIDINE SULFATE
     Indication: Product used for unknown indication
     Dosage: 20/10MG; QUANTITY 30 FOR A 30 DAYS
     Route: 065

REACTIONS (4)
  - Dementia [Fatal]
  - Atrial fibrillation [Fatal]
  - Hypertension [Fatal]
  - Death [Fatal]

NARRATIVE: CASE EVENT DATE: 20190708
